FAERS Safety Report 10188634 (Version 1)
Quarter: 2014Q2

REPORT INFORMATION
  Report Type: Spontaneous
  Country: US (occurrence: US)
  Receive Date: 20140522
  Receipt Date: 20140522
  Transmission Date: 20141212
  Serious: No
  Sender: FDA-Public Use
  Company Number: US-SA-2014SA017371

PATIENT
  Age: 74 Year
  Sex: Female

DRUGS (2)
  1. LANTUS [Suspect]
     Indication: TYPE 2 DIABETES MELLITUS
     Dosage: TAKEN FROM- 10 YEARS DOSE:13 UNIT(S)
     Route: 058
  2. HUMALOG [Concomitant]

REACTIONS (3)
  - Pain [Not Recovered/Not Resolved]
  - Blood glucose increased [Not Recovered/Not Resolved]
  - Feeling abnormal [Not Recovered/Not Resolved]
